FAERS Safety Report 7050671-9 (Version None)
Quarter: 2010Q4

REPORT INFORMATION
  Report Type: 
  Country: None (occurrence: None)
  Receive Date: 20101018
  Receipt Date: 20101007
  Transmission Date: 20110411
  Serious: Yes (Other)
  Sender: FDA-Public Use
  Company Number: GB-BRISTOL-MYERS SQUIBB COMPANY-15336852

PATIENT
  Age: 32 Year
  Sex: Female

DRUGS (3)
  1. METFORMIN HCL [Suspect]
     Indication: DIABETES MELLITUS
     Route: 048
     Dates: start: 20100916, end: 20100919
  2. ACETAMINOPHEN AND CODEINE PHOSPHATE [Concomitant]
     Indication: PAIN
     Route: 048
  3. LEVOTHYROXINE SODIUM [Concomitant]
     Indication: HYPOTHYROIDISM
     Route: 048

REACTIONS (1)
  - LIP SWELLING [None]
